FAERS Safety Report 23970837 (Version 1)
Quarter: 2024Q2

REPORT INFORMATION
  Report Type: Spontaneous
  Country: US (occurrence: US)
  Receive Date: 20240613
  Receipt Date: 20240613
  Transmission Date: 20240717
  Serious: Yes (Other)
  Sender: FDA-Public Use
  Company Number: US-009507513-2406USA003131

PATIENT
  Age: 52 Year
  Sex: Male

DRUGS (3)
  1. KEYTRUDA [Suspect]
     Active Substance: PEMBROLIZUMAB
     Indication: Metastatic malignant melanoma
     Dosage: DOSE AND FREQUENY NOT PROVIDED, 1ST CYCLE
  2. KEYTRUDA [Suspect]
     Active Substance: PEMBROLIZUMAB
     Dosage: DOSE AND FREQUENY NOT PROVIDED, 2ND CYCLE
  3. KEYTRUDA [Suspect]
     Active Substance: PEMBROLIZUMAB
     Dosage: DOSE AND FREQUENY NOT PROVIDED, 3RD CYCLE

REACTIONS (1)
  - Myelin oligodendrocyte glycoprotein antibody-associated disease [Recovered/Resolved]
